FAERS Safety Report 8930660 (Version 2)
Quarter: 2012Q4

REPORT INFORMATION
  Report Type: 
  Country: US (occurrence: US)
  Receive Date: 20121121
  Receipt Date: 20121212
  Transmission Date: 20130627
  Serious: Yes (Death, Hospitalization, Other)
  Sender: FDA-Public Use
  Company Number: US-ASTELLAS-1089766

PATIENT
  Age: 79 Year
  Sex: Female

DRUGS (1)
  1. TARCEVA [Suspect]
     Indication: NON-SMALL CELL LUNG CANCER STAGE IV
     Route: 065
     Dates: start: 2006, end: 2006

REACTIONS (5)
  - Respiratory failure [Fatal]
  - Dyspnoea [Unknown]
  - Aspiration pleural cavity [Unknown]
  - Pleurodesis [Unknown]
  - Disease progression [Fatal]
